FAERS Safety Report 23045993 (Version 1)
Quarter: 2023Q4

REPORT INFORMATION
  Report Type: Spontaneous
  Country: NL (occurrence: NL)
  Receive Date: 20231009
  Receipt Date: 20231009
  Transmission Date: 20240110
  Serious: Yes (Hospitalization, Disabling)
  Sender: FDA-Public Use
  Company Number: None

PATIENT

DRUGS (7)
  1. XCOPRI [Suspect]
     Active Substance: CENOBAMATE
     Indication: Epilepsy
     Dosage: 1X PER DAY (1 DOSAGE FORMS,1 D)
     Route: 048
     Dates: start: 20230805, end: 20230906
  2. HYDROCORTISON                      /00028601/ [Concomitant]
     Indication: Product used for unknown indication
     Dosage: TABLET, 5+10 MG  (MILLIGRAM)
     Route: 065
  3. PERAMPANEL [Concomitant]
     Active Substance: PERAMPANEL
     Indication: Product used for unknown indication
     Dosage: TABLET, 8 MG  (MILLIGRAM)
     Route: 065
  4. LEVOTHYROXINE [Concomitant]
     Active Substance: LEVOTHYROXINE
     Indication: Product used for unknown indication
     Dosage: TABLET, 200 ?G (MICROGRAM)
     Route: 065
  5. LEVETIRACETAM [Concomitant]
     Active Substance: LEVETIRACETAM
     Indication: Product used for unknown indication
     Dosage: 500 MG (MILLIGRAM)
     Route: 065
  6. LACOSAMIDE [Concomitant]
     Active Substance: LACOSAMIDE
     Indication: Product used for unknown indication
     Dosage: TABLET, 150 MG (MILLIGRAM)
     Route: 065
  7. LACOSAMIDE [Concomitant]
     Active Substance: LACOSAMIDE
     Indication: Product used for unknown indication
     Dosage: LACOSAMIDE TABLET 100MG / LACOSAMIDE SANDOZ TABLET FILMOMHULD 100MG(LACOSAMIDE)  100 MG (MILLIGRAM)
     Route: 065

REACTIONS (3)
  - Cerebral disorder [Not Recovered/Not Resolved]
  - Psychotic behaviour [Not Recovered/Not Resolved]
  - Confusional state [Not Recovered/Not Resolved]
